FAERS Safety Report 5648583-8 (Version None)
Quarter: 2008Q1

REPORT INFORMATION
  Report Type: 
  Country: None (occurrence: None)
  Receive Date: 20080304
  Receipt Date: 20080221
  Transmission Date: 20080703
  Serious: Yes (Other)
  Sender: FDA-Public Use
  Company Number: US-AMGEN-QUU266077

PATIENT
  Sex: Female
  Weight: 70.8 kg

DRUGS (2)
  1. ENBREL [Suspect]
     Indication: RHEUMATOID ARTHRITIS
     Route: 058
     Dates: start: 20080116, end: 20080218
  2. METHOTREXATE [Concomitant]
     Route: 048
     Dates: start: 20070801

REACTIONS (8)
  - CHEST PAIN [None]
  - DERMATITIS ALLERGIC [None]
  - DYSPNOEA [None]
  - HYPOAESTHESIA ORAL [None]
  - INJECTION SITE DERMATITIS [None]
  - OEDEMA MOUTH [None]
  - OEDEMA PERIPHERAL [None]
  - PHARYNGEAL OEDEMA [None]
